FAERS Safety Report 4613914-4 (Version None)
Quarter: 2005Q1

REPORT INFORMATION
  Report Type: 
  Country: None (occurrence: None)
  Receive Date: 20050321
  Receipt Date: 20050314
  Transmission Date: 20050727
  Serious: Yes (Other)
  Sender: FDA-Public Use
  Company Number: GB-GLAXOSMITHKLINE-B0374737A

PATIENT
  Age: 53 Year
  Sex: Female
  Weight: 55 kg

DRUGS (4)
  1. ZYBAN [Suspect]
     Dosage: 150MG UNKNOWN
     Route: 048
     Dates: start: 20050129, end: 20050218
  2. FEMOSTON [Concomitant]
     Indication: MENOPAUSAL SYMPTOMS
     Route: 065
     Dates: start: 20030101
  3. CO-CODAMOL [Concomitant]
     Indication: HEADACHE
     Route: 065
  4. NOCTURA [Concomitant]
     Indication: INSOMNIA
     Route: 065
     Dates: start: 20041101, end: 20050127

REACTIONS (5)
  - DEPRESSION [None]
  - DRY MOUTH [None]
  - INSOMNIA [None]
  - MOOD SWINGS [None]
  - PALPITATIONS [None]
